FAERS Safety Report 5572996-6 (Version None)
Quarter: 2007Q4

REPORT INFORMATION
  Report Type: 
  Country: None (occurrence: None)
  Receive Date: 20071224
  Receipt Date: 20071212
  Transmission Date: 20080405
  Serious: Yes (Hospitalization)
  Sender: FDA-Public Use
  Company Number: US-ROCHE-401563

PATIENT
  Age: 73 Year
  Sex: Male
  Weight: 79.5 kg

DRUGS (4)
  1. CAPECITABINE [Suspect]
     Route: 048
     Dates: start: 20041108, end: 20041129
  2. CAPECITABINE [Suspect]
     Dosage: REDUCED DOSE. (TOTAL DOSE RECEIVED THROUGH COURSE WAS 54000 MG)
     Route: 048
     Dates: start: 20041213, end: 20041221
  3. IRINOTECAN HCL [Suspect]
     Dosage: ON DAYS 1, 8, 15, 22
     Route: 042
     Dates: start: 20041108
  4. IRINOTECAN HCL [Suspect]
     Dosage: PT RECEIVED FOURTH CYCLE WITHA 25% DOSE REDUCTION. TOTAL DOSE ADMINISTERED = 70 MG.
     Route: 042
     Dates: start: 20041213, end: 20041213

REACTIONS (20)
  - ANAEMIA [None]
  - ASTHENIA [None]
  - BODY TEMPERATURE INCREASED [None]
  - CHILLS [None]
  - DEHYDRATION [None]
  - DIARRHOEA [None]
  - DIZZINESS [None]
  - ENTEROCOCCAL INFECTION [None]
  - FATIGUE [None]
  - FEELING COLD [None]
  - GASTROINTESTINAL TOXICITY [None]
  - HAEMOGLOBIN [None]
  - HIATUS HERNIA [None]
  - HYPONATRAEMIA [None]
  - MUSCULAR WEAKNESS [None]
  - PROCTALGIA [None]
  - RADIATION SKIN INJURY [None]
  - RENAL FAILURE [None]
  - SKIN TOXICITY [None]
  - URINARY RETENTION [None]
